FAERS Safety Report 9784908 (Version 3)
Quarter: 2014Q1

REPORT INFORMATION
  Report Type: Report from Study
  Country: IT (occurrence: IT)
  Receive Date: 20131227
  Receipt Date: 20140319
  Transmission Date: 20141002
  Serious: Yes (Hospitalization)
  Sender: FDA-Public Use
  Company Number: IT-AMGEN-ITACT2013058760

PATIENT
  Age: 63 Year
  Sex: Male
  Weight: 62 kg

DRUGS (8)
  1. PANITUMUMAB [Suspect]
     Indication: ADENOCARCINOMA GASTRIC
     Dosage: 340 MG, Q2WK
     Route: 042
  2. TAXOTERE [Concomitant]
     Indication: ADENOCARCINOMA GASTRIC
     Dosage: 81 MG, Q2WK
     Route: 042
     Dates: start: 20110817
  3. CISPLATINO [Concomitant]
     Indication: ADENOCARCINOMA GASTRIC
     Dosage: 68 MG, Q2WK
     Route: 042
     Dates: start: 20110817
  4. FLUOROURACILE [Concomitant]
     Indication: ADENOCARCINOMA GASTRIC
     Dosage: 1350 MG, Q2WK
     Route: 042
     Dates: start: 20110817
  5. OMEPRAZOLE [Concomitant]
     Indication: ABDOMINAL PAIN UPPER
     Dosage: 20 MG, UNK
     Route: 048
     Dates: start: 201102
  6. ENOXAPARIN [Concomitant]
     Dosage: 8000 UNIT, UNK
     Route: 058
     Dates: start: 20131001
  7. METFORMIN [Concomitant]
     Indication: DIABETES MELLITUS
     Dosage: 1000 MG, UNK
     Route: 048
     Dates: start: 2006
  8. SIMVASTATIN [Concomitant]
     Dosage: 40 MG, UNK
     Route: 048
     Dates: start: 1998

REACTIONS (3)
  - Decreased appetite [Recovered/Resolved]
  - Thrombocytopenia [Recovered/Resolved]
  - Febrile neutropenia [Recovered/Resolved]
